FAERS Safety Report 20731304 (Version 2)
Quarter: 2022Q2

REPORT INFORMATION
  Report Type: Report from Study
  Country: CA (occurrence: CA)
  Receive Date: 20220420
  Receipt Date: 20220427
  Transmission Date: 20220721
  Serious: Yes (Other)
  Sender: FDA-Public Use
  Company Number: CA-TAKEDA-2022TUS008048

PATIENT
  Age: 59 Year
  Sex: Female

DRUGS (2)
  1. VEDOLIZUMAB [Suspect]
     Active Substance: VEDOLIZUMAB
     Indication: Colitis ulcerative
     Dosage: 300 MILLIGRAM
     Route: 042
     Dates: start: 20220121
  2. PREDNISONE [Concomitant]
     Active Substance: PREDNISONE
     Dosage: 17 MILLIGRAM
     Route: 048

REACTIONS (4)
  - Colitis ulcerative [Unknown]
  - Peripheral swelling [Unknown]
  - Nausea [Unknown]
  - Illness [Unknown]
